FAERS Safety Report 10729862 (Version 1)
Quarter: 2015Q1

REPORT INFORMATION
  Report Type: Spontaneous
  Country: US (occurrence: None)
  Receive Date: 20150121
  Receipt Date: 20150121
  Transmission Date: 20150721
  Serious: Yes (Disabling)
  Sender: FDA-Public Use
  Company Number: None

PATIENT
  Age: 68 Year
  Sex: Female
  Weight: 95.26 kg

DRUGS (1)
  1. ELIQUIS [Suspect]
     Active Substance: APIXABAN
     Indication: ATRIAL FIBRILLATION
     Dosage: 1 TABLET
     Route: 048
     Dates: start: 20140404, end: 20150112

REACTIONS (9)
  - Myalgia [None]
  - Bone loss [None]
  - Arthralgia [None]
  - Arthritis [None]
  - Abscess [None]
  - Hypertension [None]
  - Gout [None]
  - Hypokalaemia [None]
  - Drug hypersensitivity [None]

NARRATIVE: CASE EVENT DATE: 20150110
